FAERS Safety Report 7182759-6 (Version None)
Quarter: 2010Q4

REPORT INFORMATION
  Report Type: 
  Country: None (occurrence: None)
  Receive Date: 20101221
  Receipt Date: 20100610
  Transmission Date: 20110411
  Serious: Yes (Hospitalization)
  Sender: FDA-Public Use
  Company Number: US-AMGEN-KDL412429

PATIENT

DRUGS (1)
  1. ENBREL [Suspect]
     Indication: PSORIATIC ARTHROPATHY
     Dosage: 50 MG, QWK
     Route: 058
     Dates: start: 20050124

REACTIONS (8)
  - BACK PAIN [None]
  - PSORIASIS [None]
  - PSORIATIC ARTHROPATHY [None]
  - PYELONEPHRITIS [None]
  - SKIN CANDIDA [None]
  - THERAPEUTIC RESPONSE DECREASED [None]
  - UPPER RESPIRATORY TRACT INFECTION [None]
  - URINARY TRACT INFECTION [None]
